FAERS Safety Report 9270899 (Version 1)
Quarter: 2013Q2

REPORT INFORMATION
  Report Type: Spontaneous
  Country: KR (occurrence: KR)
  Receive Date: 20130506
  Receipt Date: 20130506
  Transmission Date: 20140414
  Serious: Yes (Other)
  Sender: FDA-Public Use
  Company Number: KR-009507513-1305KOR001362

PATIENT
  Age: 79 Year
  Sex: Female

DRUGS (2)
  1. JANUVIA 100MG [Suspect]
     Dosage: UNK
     Dates: start: 201202
  2. METFORMIN [Concomitant]
     Dosage: UNK
     Dates: start: 201202

REACTIONS (1)
  - Pancreatic carcinoma [Unknown]
